FAERS Safety Report 22119445 (Version 1)
Quarter: 2023Q1

REPORT INFORMATION
  Report Type: Spontaneous
  Country: US (occurrence: US)
  Receive Date: 20230321
  Receipt Date: 20230321
  Transmission Date: 20230417
  Serious: No
  Sender: FDA-Public Use
  Company Number: US-MYLANLABS-2023M1027297

PATIENT
  Sex: Male

DRUGS (1)
  1. WIXELA INHUB [Suspect]
     Active Substance: FLUTICASONE PROPIONATE\SALMETEROL XINAFOATE
     Indication: Product used for unknown indication
     Dosage: 100/50 MICROGRAM
     Route: 055

REACTIONS (4)
  - Drug ineffective [Unknown]
  - Device delivery system issue [Unknown]
  - Product taste abnormal [Unknown]
  - Product odour abnormal [Unknown]
